FAERS Safety Report 10732831 (Version 1)
Quarter: 2015Q1

REPORT INFORMATION
  Report Type: Spontaneous
  Country: TN (occurrence: None)
  Receive Date: 20150120
  Receipt Date: 20150120
  Transmission Date: 20150721
  Serious: Yes (Other)
  Sender: FDA-Public Use
  Company Number: 2015VER00017

PATIENT
  Age: 29 Year
  Sex: Male

DRUGS (4)
  1. ISONIAZID. [Concomitant]
     Active Substance: ISONIAZID
  2. RIFAMPIN (RIFAMPIN) UNKNOWN [Suspect]
     Active Substance: RIFAMPIN
     Indication: TUBERCULOSIS
  3. STREPTOMYCIN [Concomitant]
     Active Substance: STREPTOMYCIN\STREPTOMYCIN SULFATE
  4. PYRAZINAMIDE. [Concomitant]
     Active Substance: PYRAZINAMIDE

REACTIONS (1)
  - Anaphylactic shock [None]
